FAERS Safety Report 5366202-5 (Version None)
Quarter: 2007Q2

REPORT INFORMATION
  Report Type: 
  Country: None (occurrence: None)
  Receive Date: 20070619
  Receipt Date: 20070608
  Transmission Date: 20071010
  Serious: Yes (Other)
  Sender: FDA-Public Use
  Company Number: 2007AP000625

PATIENT
  Age: 85 Year
  Sex: Female

DRUGS (1)
  1. LISINOPRIL [Suspect]
     Indication: HYPERTENSION
     Dosage: 5 MG; QD
     Dates: start: 20070526

REACTIONS (3)
  - DELUSION [None]
  - HALLUCINATION [None]
  - PHARMACEUTICAL PRODUCT COMPLAINT [None]
